FAERS Safety Report 5068647-X (Version None)
Quarter: 2006Q3

REPORT INFORMATION
  Report Type: 
  Country: None (occurrence: None)
  Receive Date: 20060802
  Receipt Date: 20060124
  Transmission Date: 20061208
  Serious: No
  Sender: FDA-Public Use
  Company Number: US-BRISTOL-MYERS SQUIBB COMPANY-13258546

PATIENT
  Age: 89 Year
  Sex: Male
  Weight: 66 kg

DRUGS (2)
  1. COUMADIN [Suspect]
     Indication: BLOOD VISCOSITY INCREASED
  2. ACETAMINOPHEN [Concomitant]

REACTIONS (1)
  - PAIN IN EXTREMITY [None]
